FAERS Safety Report 11695718 (Version 9)
Quarter: 2018Q2

REPORT INFORMATION
  Report Type: Report from Study
  Country: FR (occurrence: FR)
  Receive Date: 20151104
  Receipt Date: 20180508
  Transmission Date: 20180711
  Serious: Yes (Hospitalization)
  Sender: FDA-Public Use
  Company Number: FR-ROCHE-1654125

PATIENT
  Age: 39 Year
  Sex: Female
  Weight: 61 kg

DRUGS (5)
  1. ALUMINIUM MAGNESIUM SILICATE [Concomitant]
     Active Substance: MAGNESIUM ALUMINUM SILICATE
     Indication: HIATUS HERNIA
  2. LENALIDOMIDE [Suspect]
     Active Substance: LENALIDOMIDE
     Indication: DIFFUSE LARGE B-CELL LYMPHOMA
     Dosage: THE LAST DOSE PRIOR TO THE FLUID OVERLOAD WAS ADMINISTERED ON 29/OCT/2015?DATE OF LAST DOSE PRIOR TO
     Route: 048
     Dates: start: 20151019
  3. OBINUTUZUMAB. [Suspect]
     Active Substance: OBINUTUZUMAB
     Dosage: THE LAST DOSE PRIOR TO THE FLUID OVERLOAD WAS ADMINISTERED ON 26/OCT/2015?DATE OF LAST DOSE PRIOR TO
     Route: 042
     Dates: start: 20151027, end: 20151027
  4. OBINUTUZUMAB. [Suspect]
     Active Substance: OBINUTUZUMAB
     Indication: DIFFUSE LARGE B-CELL LYMPHOMA
     Dosage: THE LAST DOSE PRIOR TO THE FLUID OVERLOAD WAS ADMINISTERED ON 26/OCT/2015?DATE OF LAST DOSE PRIOR TO
     Route: 042
     Dates: start: 20151026, end: 20151026
  5. PANTOPRAZOLE [Concomitant]
     Active Substance: PANTOPRAZOLE
     Indication: HIATUS HERNIA

REACTIONS (1)
  - Tumour flare [Recovered/Resolved]

NARRATIVE: CASE EVENT DATE: 20151029
